FAERS Safety Report 8506673-6 (Version None)
Quarter: 2012Q3

REPORT INFORMATION
  Report Type: 
  Country: None (occurrence: None)
  Receive Date: 20120712
  Receipt Date: 20120710
  Transmission Date: 20120928
  Serious: Yes (Hospitalization)
  Sender: FDA-Public Use
  Company Number: GXKR2012DE001970

PATIENT
  Age: 77 Year
  Sex: Male
  Weight: 87 kg

DRUGS (1)
  1. CLINDAMYCIN [Suspect]
     Indication: DENTAL CARE
     Dosage: 300 MG, UNK
     Route: 048
     Dates: start: 20120602, end: 20120608

REACTIONS (1)
  - CHEST DISCOMFORT [None]
